FAERS Safety Report 6287047-8 (Version None)
Quarter: 2009Q3

REPORT INFORMATION
  Report Type: 
  Country: None (occurrence: None)
  Receive Date: 20090727
  Receipt Date: 20090727
  Transmission Date: 20100115
  Serious: Yes (Other)
  Sender: FDA-Public Use
  Company Number: None

PATIENT
  Age: 70 Year
  Sex: Male
  Weight: 61.2356 kg

DRUGS (2)
  1. ENTOCORT EC [Suspect]
     Indication: COLITIS
     Dosage: 2 CAPSULES EVERY MORNING MOUTH
     Route: 048
     Dates: start: 20090301
  2. ENTOCORT EC [Suspect]
     Indication: PAIN MANAGEMENT
     Dosage: 2 CAPSULES EVERY MORNING MOUTH
     Route: 048
     Dates: start: 20090301

REACTIONS (1)
  - DRUG EFFECT DECREASED [None]
